FAERS Safety Report 8475483-0 (Version None)
Quarter: 2012Q2

REPORT INFORMATION
  Report Type: 
  Country: None (occurrence: None)
  Receive Date: 20120628
  Receipt Date: 20120622
  Transmission Date: 20120825
  Serious: Yes (Hospitalization)
  Sender: FDA-Public Use
  Company Number: CA-ROCHE-1081874

PATIENT
  Sex: Male

DRUGS (17)
  1. LEVOFLOXACIN [Suspect]
     Indication: PRODUCT USED FOR UNKNOWN INDICATION
  2. TYLENOL W/ CODEINE NO. 3 [Concomitant]
  3. GABAPENTIN [Concomitant]
  4. LACTULOSE [Concomitant]
  5. METAMUCIL-2 [Concomitant]
  6. MABTHERA [Suspect]
     Indication: RHEUMATOID ARTHRITIS
     Route: 042
     Dates: start: 20110812
  7. PANTOPRAZOLE SODIUM [Concomitant]
  8. FLOMAX [Concomitant]
  9. NPH INSULIN [Concomitant]
  10. SENOKOT [Concomitant]
  11. ACTONEL [Concomitant]
  12. COLACE [Concomitant]
  13. CALCIUM [Concomitant]
  14. PROSCAR [Concomitant]
  15. INSULIN [Concomitant]
  16. VITAMIN D [Concomitant]
  17. PREDNISONE TAB [Concomitant]

REACTIONS (3)
  - OSTEOMYELITIS [None]
  - PNEUMONIA [None]
  - DRUG HYPERSENSITIVITY [None]
